FAERS Safety Report 24149292 (Version 1)
Quarter: 2024Q3

REPORT INFORMATION
  Report Type: Spontaneous
  Country: JP (occurrence: JP)
  Receive Date: 20240730
  Receipt Date: 20240730
  Transmission Date: 20241016
  Serious: Yes (Hospitalization, Other)
  Sender: JOHNSON AND JOHNSON
  Company Number: JP-JNJFOC-20240776180

PATIENT
  Sex: Female
  Weight: 42 kg

DRUGS (3)
  1. RISPERDAL [Suspect]
     Active Substance: RISPERIDONE
     Indication: Dementia
     Dosage: DOSE UNKNOWN
     Route: 048
  2. RISPERDAL [Suspect]
     Active Substance: RISPERIDONE
     Dosage: AFTER LUNCH
     Route: 048
     Dates: start: 202404
  3. VALPROATE SODIUM [Concomitant]
     Active Substance: VALPROATE SODIUM
     Indication: Epilepsy
     Dosage: DOSE UNKNOWN
     Route: 048
     Dates: start: 202403, end: 202405

REACTIONS (7)
  - Hospitalisation [Unknown]
  - Cerebral haemorrhage [Unknown]
  - Coma [Unknown]
  - Oedema peripheral [Unknown]
  - Fall [Unknown]
  - Drooling [Unknown]
  - Off label use [Unknown]

NARRATIVE: CASE EVENT DATE: 20240101
